FAERS Safety Report 23523586 (Version 2)
Quarter: 2024Q2

REPORT INFORMATION
  Report Type: Spontaneous
  Country: US (occurrence: US)
  Receive Date: 20240214
  Receipt Date: 20240501
  Transmission Date: 20240717
  Serious: Yes (Death, Hospitalization, Other)
  Sender: FDA-Public Use
  Company Number: US-PFIZER INC-202400038194

PATIENT
  Age: 78 Year
  Sex: Male
  Weight: 68.027 kg

DRUGS (1)
  1. VYNDAMAX [Suspect]
     Active Substance: TAFAMIDIS
     Indication: Cardiac amyloidosis
     Dosage: 61 MG, DAILY
     Dates: start: 202211

REACTIONS (5)
  - Cardiac amyloidosis [Fatal]
  - Condition aggravated [Fatal]
  - Tibia fracture [Unknown]
  - Fibula fracture [Unknown]
  - Critical illness [Unknown]
